FAERS Safety Report 22022142 (Version 1)
Quarter: 2023Q1

REPORT INFORMATION
  Report Type: Spontaneous
  Country: US (occurrence: None)
  Receive Date: 20230220
  Receipt Date: 20230220
  Transmission Date: 20230417
  Serious: Yes (Hospitalization)
  Sender: FDA-Public Use
  Company Number: None

PATIENT
  Sex: Male

DRUGS (1)
  1. CAPECITABINE [Suspect]
     Active Substance: CAPECITABINE
     Indication: Colon cancer
     Dosage: 150 MG DWICE DAILY BY MOUTH
     Route: 048
     Dates: start: 202301

REACTIONS (4)
  - Therapy change [None]
  - Thrombosis [None]
  - White blood cell count decreased [None]
  - Intestinal sepsis [None]
